FAERS Safety Report 6282591-1 (Version None)
Quarter: 2009Q4

REPORT INFORMATION
  Report Type: 
  Country: None (occurrence: None)
  Receive Date: 20090722
  Receipt Date: 20090722
  Transmission Date: 20100525
  Serious: No
  Sender: FDA-Public Use
  Company Number: None

PATIENT
  Age: 54 Year
  Sex: Female

DRUGS (1)
  1. KETEK [Suspect]
     Dates: start: 20070118, end: 20070127

REACTIONS (3)
  - EOSINOPHILIA [None]
  - HEPATITIS ACUTE [None]
  - LIVER INJURY [None]
